FAERS Safety Report 22171381 (Version 1)
Quarter: 2023Q2

REPORT INFORMATION
  Report Type: Spontaneous
  Country: US (occurrence: None)
  Receive Date: 20230403
  Receipt Date: 20230403
  Transmission Date: 20230722
  Serious: Yes (Hospitalization)
  Sender: FDA-Public Use
  Company Number: None

PATIENT
  Sex: Female

DRUGS (1)
  1. VERZENIO [Suspect]
     Active Substance: ABEMACICLIB
     Indication: Breast cancer
     Dosage: 150MG TWICE DAILY
     Route: 048
     Dates: start: 202303

REACTIONS (4)
  - Seizure [None]
  - Femur fracture [None]
  - Metastases to bone [None]
  - Pain [None]
